FAERS Safety Report 6148140-3 (Version None)
Quarter: 2009Q2

REPORT INFORMATION
  Report Type: 
  Country: None (occurrence: None)
  Receive Date: 20090408
  Receipt Date: 20090401
  Transmission Date: 20091009
  Serious: Yes (Other)
  Sender: FDA-Public Use
  Company Number: CA-JNJCH-2009009088

PATIENT
  Sex: Female

DRUGS (1)
  1. BENYLIN DM SYRUP [Suspect]
     Indication: DRUG USE FOR UNKNOWN INDICATION
     Dosage: TEXT:UNSPECIFIED
     Route: 048
     Dates: start: 20090323, end: 20090330

REACTIONS (2)
  - DYSPHAGIA [None]
  - SWOLLEN TONGUE [None]
